FAERS Safety Report 15791126 (Version 1)
Quarter: 2019Q1

REPORT INFORMATION
  Report Type: Spontaneous
  Country: GB (occurrence: GB)
  Receive Date: 20190104
  Receipt Date: 20190104
  Transmission Date: 20190417
  Serious: Yes (Hospitalization)
  Sender: FDA-Public Use
  Company Number: GB-BAYER-2019-003433

PATIENT
  Age: 50 Year
  Sex: Male

DRUGS (6)
  1. NINTEDANIB [Suspect]
     Active Substance: NINTEDANIB
  2. FELODIPINE. [Concomitant]
     Active Substance: FELODIPINE
  3. LOSARTAN. [Concomitant]
     Active Substance: LOSARTAN
  4. SIMVASTATIN. [Concomitant]
     Active Substance: SIMVASTATIN
  5. ASPRO CLEAR 300 MG [Suspect]
     Active Substance: ASPIRIN
  6. ATENOLOL. [Concomitant]
     Active Substance: ATENOLOL

REACTIONS (4)
  - Dizziness [Unknown]
  - Gastrointestinal haemorrhage [Recovered/Resolved]
  - Circulatory collapse [Unknown]
  - Melaena [Recovered/Resolved]

NARRATIVE: CASE EVENT DATE: 20180612
